FAERS Safety Report 9048561 (Version 1)
Quarter: 2013Q1

REPORT INFORMATION
  Report Type: Spontaneous
  Country: US (occurrence: None)
  Receive Date: 20130116
  Receipt Date: 20130116
  Transmission Date: 20140127
  Serious: Yes (Hospitalization)
  Sender: FDA-Public Use
  Company Number: COM-000922

PATIENT
  Age: 32 Year
  Sex: Male
  Weight: 77.11 kg

DRUGS (1)
  1. SIMETHICONE 125MG SOFTGEL/ BANNER [Suspect]
     Indication: ABDOMINAL DISTENSION
     Dosage: 1 SOFTGEL, ONCE, ORALLY
     Route: 048
     Dates: start: 20121014, end: 20121016

REACTIONS (1)
  - Haematochezia [None]
